FAERS Safety Report 20411097 (Version 1)
Quarter: 2022Q1

REPORT INFORMATION
  Report Type: Spontaneous
  Country: US (occurrence: None)
  Receive Date: 20220201
  Receipt Date: 20220201
  Transmission Date: 20220424
  Serious: Yes (Hospitalization)
  Sender: FDA-Public Use
  Company Number: None

PATIENT
  Age: 3 Year
  Sex: Male
  Weight: 14.7 kg

DRUGS (5)
  1. DEXAMETHASONE [Suspect]
     Active Substance: DEXAMETHASONE
  2. METHOTREXATE [Suspect]
     Active Substance: METHOTREXATE
  3. ONCASPAR [Suspect]
     Active Substance: PEGASPARGASE
  4. CYTARABINE [Suspect]
     Active Substance: CYTARABINE
  5. VINCRISTINE SULFATE [Suspect]
     Active Substance: VINCRISTINE SULFATE

REACTIONS (2)
  - Alanine aminotransferase increased [None]
  - Pyrexia [None]

NARRATIVE: CASE EVENT DATE: 20210604
